FAERS Safety Report 12502838 (Version 1)
Quarter: 2016Q2

REPORT INFORMATION
  Report Type: Spontaneous
  Country: US (occurrence: US)
  Receive Date: 20160628
  Receipt Date: 20160628
  Transmission Date: 20160815
  Serious: No
  Sender: FDA-Public Use
  Company Number: US-GILEAD-2016-0220267

PATIENT
  Age: 10 Year
  Sex: Male
  Weight: 29.48 kg

DRUGS (3)
  1. ORENITRAM [Suspect]
     Active Substance: TREPROSTINIL
     Indication: PULMONARY ARTERIAL HYPERTENSION
     Dosage: 3.625 MG, TID
     Route: 048
     Dates: start: 20160111
  2. LETAIRIS [Suspect]
     Active Substance: AMBRISENTAN
     Indication: PRODUCT USED FOR UNKNOWN INDICATION
     Route: 065
  3. NIFEDIPINE. [Concomitant]
     Active Substance: NIFEDIPINE

REACTIONS (2)
  - Off label use [Unknown]
  - Spontaneous penile erection [Unknown]

NARRATIVE: CASE EVENT DATE: 20160531
